FAERS Safety Report 5170130-8 (Version None)
Quarter: 2006Q4

REPORT INFORMATION
  Report Type: 
  Country: None (occurrence: None)
  Receive Date: 20061201
  Receipt Date: 20061117
  Transmission Date: 20070319
  Serious: Yes (Hospitalization, Other)
  Sender: FDA-Public Use
  Company Number: 2006-07-0334

PATIENT
  Age: 40 Year
  Sex: Female
  Weight: 180 kg

DRUGS (6)
  1. PEG-INTRON [Suspect]
     Indication: HEPATITIS C
     Dosage: SC
     Route: 058
     Dates: start: 20060310
  2. RIBAVIRIN [Suspect]
     Indication: HEPATITIS C
     Dosage: PO
     Route: 048
     Dates: start: 20060310
  3. CITALOPRAM HYDROBROMIDE [Concomitant]
  4. CLONAZEPAM [Concomitant]
  5. PROCRIT [Concomitant]
  6. HEPATITIS B VACCINE [Concomitant]

REACTIONS (18)
  - ANAEMIA [None]
  - ANXIETY [None]
  - BLISTER INFECTED [None]
  - BLOOD POTASSIUM INCREASED [None]
  - DEHYDRATION [None]
  - DEPRESSION [None]
  - FATIGUE [None]
  - FLUID INTAKE REDUCED [None]
  - HEPATIC PAIN [None]
  - INJECTION SITE ERYTHEMA [None]
  - INJECTION SITE PAIN [None]
  - INJECTION SITE SWELLING [None]
  - INJECTION SITE WARMTH [None]
  - ORAL INTAKE REDUCED [None]
  - SECRETION DISCHARGE [None]
  - SKIN LESION [None]
  - SUICIDAL IDEATION [None]
  - WEIGHT DECREASED [None]
